FAERS Safety Report 10101922 (Version 2)
Quarter: 2014Q2

REPORT INFORMATION
  Report Type: Spontaneous
  Country: US (occurrence: US)
  Receive Date: 20140424
  Receipt Date: 20140523
  Transmission Date: 20141212
  Serious: Yes (Other)
  Sender: FDA-Public Use
  Company Number: US-SA-2014SA052737

PATIENT
  Age: 60 Year
  Sex: Male
  Weight: 99 kg

DRUGS (19)
  1. ZALTRAP [Suspect]
     Indication: COLON CANCER METASTATIC
     Route: 042
     Dates: start: 20121201, end: 20121201
  2. ZALTRAP [Suspect]
     Indication: DISEASE PROGRESSION
     Route: 042
     Dates: start: 20121201, end: 20121201
  3. ZALTRAP [Suspect]
     Indication: PULMONARY MASS
     Route: 042
     Dates: start: 20121201, end: 20121201
  4. ZALTRAP [Suspect]
     Indication: COLON CANCER METASTATIC
     Route: 042
     Dates: start: 20140131, end: 20140131
  5. ZALTRAP [Suspect]
     Indication: DISEASE PROGRESSION
     Route: 042
     Dates: start: 20140131, end: 20140131
  6. ZALTRAP [Suspect]
     Indication: PULMONARY MASS
     Route: 042
     Dates: start: 20140131, end: 20140131
  7. LEUCOVORIN [Concomitant]
     Indication: COLON CANCER METASTATIC
     Dates: start: 20121124
  8. FLUOROURACIL [Concomitant]
     Indication: COLON CANCER METASTATIC
     Dates: start: 20121124
  9. IRINOTECAN [Concomitant]
     Indication: COLON CANCER METASTATIC
     Dates: start: 20121124
  10. CARBIDOPA/LEVODOPA [Concomitant]
     Indication: PARKINSON^S DISEASE
  11. CELEXA [Concomitant]
     Indication: NEUROPATHY PERIPHERAL
  12. DIOVAN [Concomitant]
  13. SYNTHROID [Concomitant]
  14. AMLODIPINE [Concomitant]
  15. POTASSIUM CHLORIDE [Concomitant]
  16. HYDROCHLOROTHIAZIDE [Concomitant]
  17. PROPRANOLOL [Concomitant]
  18. XANAX [Concomitant]
     Dosage: ONE TO TWO NIGHTLY
  19. GLIMEPIRIDE [Concomitant]

REACTIONS (6)
  - Bone loss [Not Recovered/Not Resolved]
  - Osteonecrosis of jaw [Not Recovered/Not Resolved]
  - Pain in jaw [Not Recovered/Not Resolved]
  - Tooth abscess [Recovering/Resolving]
  - Periodontal disease [Not Recovered/Not Resolved]
  - Dysphagia [Not Recovered/Not Resolved]
